FAERS Safety Report 26115913 (Version 1)
Quarter: 2025Q4

REPORT INFORMATION
  Report Type: Spontaneous
  Country: US (occurrence: US)
  Receive Date: 20251203
  Receipt Date: 20251203
  Transmission Date: 20260117
  Serious: Yes (Other)
  Sender: ROCHE
  Company Number: US-ROCHE-10000423265

PATIENT
  Age: 16 Month
  Sex: Male

DRUGS (3)
  1. HEMLIBRA [Suspect]
     Active Substance: EMICIZUMAB-KXWH
     Indication: Factor VIII deficiency
     Dosage: STRENGTH: 30 MG/ ML
     Route: 058
     Dates: start: 202406
  2. HEMLIBRA [Suspect]
     Active Substance: EMICIZUMAB-KXWH
     Dosage: STRENGTH: 60 MG / 0.4 ML
     Route: 058
     Dates: start: 202407
  3. ELOCTATE [Concomitant]
     Active Substance: EFMOROCTOCOG ALFA

REACTIONS (4)
  - Head injury [Unknown]
  - Haemorrhage [Unknown]
  - Gingival bleeding [Unknown]
  - Fall [Unknown]

NARRATIVE: CASE EVENT DATE: 20251018
